FAERS Safety Report 6079682-7 (Version None)
Quarter: 2009Q1

REPORT INFORMATION
  Report Type: 
  Country: None (occurrence: None)
  Receive Date: 20090211
  Receipt Date: 20090127
  Transmission Date: 20090719
  Serious: Yes (Hospitalization)
  Sender: FDA-Public Use
  Company Number: GP-09-01-0014

PATIENT
  Age: 43 Year
  Sex: Male

DRUGS (8)
  1. SIMVASTATIN [Suspect]
  2. FLUCONAZOLE [Suspect]
     Indication: ORAL CANDIDIASIS
  3. CLOPIDROGEL [Concomitant]
  4. GLICLAZIDE [Concomitant]
  5. METFORMIN [Concomitant]
  6. ATENOLOL [Concomitant]
  7. RAMIPRIL [Concomitant]
  8. CO-TRIMOXAZOLE [Concomitant]

REACTIONS (14)
  - ACTIVITIES OF DAILY LIVING IMPAIRED [None]
  - ANOREXIA [None]
  - BLOOD CREATINE PHOSPHOKINASE INCREASED [None]
  - CACHEXIA [None]
  - GAIT DISTURBANCE [None]
  - GENITAL HERPES [None]
  - HEPATITIS B SURFACE ANTIGEN POSITIVE [None]
  - HIV INFECTION [None]
  - HYPOREFLEXIA [None]
  - LIVER FUNCTION TEST ABNORMAL [None]
  - MUSCULAR WEAKNESS [None]
  - MYALGIA [None]
  - ORAL CANDIDIASIS [None]
  - RENAL IMPAIRMENT [None]
